FAERS Safety Report 6786537-9 (Version None)
Quarter: 2010Q2

REPORT INFORMATION
  Report Type: 
  Country: None (occurrence: None)
  Receive Date: 20100623
  Receipt Date: 20090901
  Transmission Date: 20101027
  Serious: No
  Sender: FDA-Public Use
  Company Number: US-TYCO HEALTHCARE/MALLINCKRODT-T200901628

PATIENT
  Sex: Female

DRUGS (2)
  1. TECHNESCAN MAG3 [Suspect]
     Dosage: UNK
     Dates: start: 20090901, end: 20090901
  2. ULTRA-TECHNEKOW [Suspect]
     Dosage: UNK
     Dates: start: 20090901, end: 20090901

REACTIONS (3)
  - ACCIDENTAL EXPOSURE [None]
  - INJURY ASSOCIATED WITH DEVICE [None]
  - RADIATION EXPOSURE DURING PREGNANCY [None]
